FAERS Safety Report 15322761 (Version 1)
Quarter: 2018Q4

REPORT INFORMATION
  Report Type: Spontaneous
  Country: FR (occurrence: FR)
  Receive Date: 20180827
  Receipt Date: 20180827
  Transmission Date: 20190204
  Serious: Yes (Other)
  Sender: FDA-Public Use
  Company Number: FR-TEVA-2018-FR-947528

PATIENT
  Age: 20 Year
  Sex: Female
  Weight: 65 kg

DRUGS (6)
  1. PARACETAMOL [Suspect]
     Active Substance: ACETAMINOPHEN
     Indication: PAIN
     Route: 042
     Dates: start: 20180511
  2. SPECIAFOLDINE 5 MG, COMPRIM? [Suspect]
     Active Substance: FOLIC ACID
     Indication: SUPPLEMENTATION THERAPY
     Dosage: 10 MILLIGRAM DAILY;
     Route: 048
     Dates: start: 20180512
  3. TRAMADOL BASE [Suspect]
     Active Substance: TRAMADOL
     Indication: PAIN
     Route: 048
     Dates: start: 20180512, end: 20180513
  4. LOVENOX [Suspect]
     Active Substance: ENOXAPARIN SODIUM
     Indication: PROPHYLAXIS
     Dosage: .4 ML DAILY;
     Route: 058
     Dates: start: 20180511
  5. CEFTRIAXONE MYLAN 1 G, POUDRE POUR SOLUTION INJECTABLE [Suspect]
     Active Substance: CEFTRIAXONE
     Indication: INFECTION
     Dosage: 2 GRAM DAILY;
     Route: 042
     Dates: start: 20180512, end: 20180514
  6. NEFOPAM (CHLORHYDRATE DE) [Suspect]
     Active Substance: NEFOPAM HYDROCHLORIDE
     Indication: PAIN
     Route: 042
     Dates: start: 20180511, end: 20180514

REACTIONS (1)
  - Neutropenia [Not Recovered/Not Resolved]

NARRATIVE: CASE EVENT DATE: 20180513
